FAERS Safety Report 6956464-2 (Version None)
Quarter: 2010Q3

REPORT INFORMATION
  Report Type: 
  Country: None (occurrence: None)
  Receive Date: 20100830
  Receipt Date: 20100823
  Transmission Date: 20110219
  Serious: Yes (Other)
  Sender: FDA-Public Use
  Company Number: US-BAYER-201021046NA

PATIENT
  Age: 35 Year
  Sex: Female
  Weight: 61 kg

DRUGS (5)
  1. AVELOX [Suspect]
     Indication: SINUSITIS
     Route: 048
     Dates: start: 20100423, end: 20100424
  2. FLONAZE [Concomitant]
     Route: 055
  3. LISINOPRIL [Concomitant]
  4. ZYERTEC [Concomitant]
  5. ALLERGEN [Concomitant]

REACTIONS (8)
  - BLOOD PRESSURE INCREASED [None]
  - DYSPNOEA [None]
  - EAR DISCOMFORT [None]
  - HEART RATE INCREASED [None]
  - HYPERSENSITIVITY [None]
  - INSOMNIA [None]
  - NAUSEA [None]
  - VOMITING [None]
